FAERS Safety Report 5170184-9 (Version None)
Quarter: 2006Q4

REPORT INFORMATION
  Report Type: 
  Country: None (occurrence: None)
  Receive Date: 20061212
  Receipt Date: 20010402
  Transmission Date: 20070319
  Serious: Yes (Hospitalization)
  Sender: FDA-Public Use
  Company Number: FR-ROCHE-258005

PATIENT
  Age: 1 Hour
  Sex: Female
  Weight: 3.2 kg

DRUGS (8)
  1. INVIRASE [Suspect]
     Indication: HIV INFECTION
     Dosage: SAQUINAVIR WAS STARTED DURING THE 27TH WEEK OF AMENORRHEA.
  2. VIDEX [Suspect]
     Indication: DRUG USE FOR UNKNOWN INDICATION
     Dosage: VIDEX WAS RESTARTED DURING THE 27TH WEEK OF AMENORRHEA.
  3. VIDEX [Suspect]
     Dosage: VIDEX WAS STOPPED ON DAY 3 OF THE PREGNANCY.
  4. RETROVIR [Suspect]
     Indication: HIV INFECTION
     Dosage: RETROVIR WAS STARTED DURING THE 27TH WEEK OF AMENORRHEA.
  5. NORVIR [Suspect]
     Indication: DRUG USE FOR UNKNOWN INDICATION
     Dosage: NORVIR WAS STARTED DURING THE 27TH WEEK OF AMENORRHEA.
  6. VIRAMUNE [Suspect]
     Indication: HIV INFECTION
     Dosage: THE PATIENT RECEIVED VIRAMUNE DURING DELIVERY.
  7. D4T [Concomitant]
     Indication: HIV INFECTION
     Dosage: D4T WAS STOPPED ON DAY 3 OF THE PREGNANCY.
  8. SUSTIVA [Concomitant]
     Indication: HIV INFECTION
     Dosage: SUSTIVA WAS STOPPED ON DAY 3 OF THE PREGNANCY.

REACTIONS (15)
  - ABDOMINAL PAIN [None]
  - ANAEMIA [None]
  - BLOOD LACTIC ACID INCREASED [None]
  - DRUG EXPOSURE DURING PREGNANCY [None]
  - FLATULENCE [None]
  - HEPATOMEGALY [None]
  - HYPERTRIGLYCERIDAEMIA [None]
  - HYPOTONIA [None]
  - MALAISE [None]
  - NEUTROPENIA [None]
  - OBESITY [None]
  - POLYHYDRAMNIOS [None]
  - SUPRAVENTRICULAR TACHYCARDIA [None]
  - TACHYCARDIA FOETAL [None]
  - THREATENED LABOUR [None]
